FAERS Safety Report 6198374-7 (Version None)
Quarter: 2009Q2

REPORT INFORMATION
  Report Type: 
  Country: None (occurrence: None)
  Receive Date: 20090521
  Receipt Date: 20090513
  Transmission Date: 20091009
  Serious: Yes (Death, Hospitalization)
  Sender: FDA-Public Use
  Company Number: US-JNJFOC-20090302248

PATIENT
  Sex: Female
  Weight: 53.63 kg

DRUGS (5)
  1. REMICADE [Suspect]
     Indication: CROHN'S DISEASE
     Route: 042
  2. CIMZIA [Suspect]
     Route: 058
  3. CIMZIA [Suspect]
     Indication: CROHN'S DISEASE
     Dosage: RECEIVED 5 DOSES
     Route: 058
  4. IMURAN [Concomitant]
  5. ASACOL [Concomitant]

REACTIONS (3)
  - DEATH [None]
  - MYOCARDIAL INFARCTION [None]
  - NO THERAPEUTIC RESPONSE [None]
